FAERS Safety Report 4479478-3 (Version None)
Quarter: 2004Q4

REPORT INFORMATION
  Report Type: 
  Country: None (occurrence: None)
  Receive Date: 20041015
  Receipt Date: 20041005
  Transmission Date: 20050328
  Serious: Yes (Life-Threatening, Other)
  Sender: FDA-Public Use
  Company Number: 2004237462GB

PATIENT
  Sex: Male

DRUGS (1)
  1. CABERGOLINE [Suspect]
     Indication: PARKINSON'S DISEASE
     Dosage: 6 MG, QD, ORAL
     Route: 048
     Dates: start: 20020109, end: 20040303

REACTIONS (4)
  - ANGIONEUROTIC OEDEMA [None]
  - CARDIOMYOPATHY [None]
  - DYSPNOEA [None]
  - ORTHOPNOEA [None]
